FAERS Safety Report 23427938 (Version 5)
Quarter: 2024Q2

REPORT INFORMATION
  Report Type: Spontaneous
  Country: US (occurrence: US)
  Receive Date: 20240122
  Receipt Date: 20240426
  Transmission Date: 20240716
  Serious: Yes (Hospitalization)
  Sender: FDA-Public Use
  Company Number: US-PFIZER INC-PV202400007896

PATIENT
  Age: 71 Year
  Sex: Male

DRUGS (2)
  1. IBRANCE [Suspect]
     Active Substance: PALBOCICLIB
     Dosage: TAKES AFTER DINNER
  2. ONDANSETRON [Concomitant]
     Active Substance: ONDANSETRON
     Dosage: UNK

REACTIONS (11)
  - Thrombosis [Unknown]
  - Rash [Not Recovered/Not Resolved]
  - Herpes zoster [Unknown]
  - Illness [Unknown]
  - Pain [Unknown]
  - Peripheral swelling [Recovering/Resolving]
  - Gait inability [Unknown]
  - Localised infection [Unknown]
  - Pain in extremity [Unknown]
  - Nausea [Recovered/Resolved]
  - Vomiting [Unknown]

NARRATIVE: CASE EVENT DATE: 20240101
